FAERS Safety Report 19426493 (Version 1)
Quarter: 2021Q2

REPORT INFORMATION
  Report Type: Spontaneous
  Country: SE (occurrence: AU)
  Receive Date: 20210616
  Receipt Date: 20210616
  Transmission Date: 20210717
  Serious: Yes (Congenital Anomaly)
  Sender: FDA-Public Use
  Company Number: SE-PFIZER INC-2021653769

PATIENT

DRUGS (2)
  1. VALPROIC ACID. [Suspect]
     Active Substance: VALPROIC ACID
     Dosage: 1200 MG, 1X/DAY, DURING 1ST TRIMESTER
  2. LEVETIRACETAM. [Suspect]
     Active Substance: LEVETIRACETAM
     Dosage: 1200 MG, SINGLE, DURING FIRST TRIMESTER
     Route: 064

REACTIONS (2)
  - Maternal exposure during pregnancy [Unknown]
  - Renal fusion anomaly [Unknown]
